FAERS Safety Report 5315682-X (Version None)
Quarter: 2007Q2

REPORT INFORMATION
  Report Type: 
  Country: None (occurrence: None)
  Receive Date: 20070503
  Receipt Date: 20070423
  Transmission Date: 20071010
  Serious: Yes (Hospitalization)
  Sender: FDA-Public Use
  Company Number: TR-MERCK-0510USA09319

PATIENT
  Age: 15 Year
  Sex: Male

DRUGS (1)
  1. CUPRIMINE [Suspect]
     Route: 048

REACTIONS (2)
  - GLOMERULONEPHRITIS MEMBRANOPROLIFERATIVE [None]
  - UPPER GASTROINTESTINAL HAEMORRHAGE [None]
